FAERS Safety Report 7824068-5 (Version None)
Quarter: 2011Q4

REPORT INFORMATION
  Report Type: 
  Country: None (occurrence: None)
  Receive Date: 20111019
  Receipt Date: 20111011
  Transmission Date: 20120403
  Serious: Yes (Other)
  Sender: FDA-Public Use
  Company Number: PHHY2011BR90866

PATIENT
  Sex: Male

DRUGS (1)
  1. RITALIN LA [Suspect]
     Dosage: UNK
     Dates: start: 20111003

REACTIONS (7)
  - CHEST PAIN [None]
  - DECREASED APPETITE [None]
  - TACHYCARDIA [None]
  - RETCHING [None]
  - HAEMATOCHEZIA [None]
  - PYREXIA [None]
  - DIZZINESS [None]
